FAERS Safety Report 6471242-9 (Version None)
Quarter: 2009Q4

REPORT INFORMATION
  Report Type: 
  Country: None (occurrence: None)
  Receive Date: 20091203
  Receipt Date: 20080502
  Transmission Date: 20100525
  Serious: Yes (Death, Hospitalization)
  Sender: FDA-Public Use
  Company Number: US-ELI_LILLY_AND_COMPANY-US200802002576

PATIENT
  Sex: Female

DRUGS (1)
  1. FORTEO [Suspect]
     Dosage: UNK, UNK
     Route: 058
     Dates: start: 20040101, end: 20050201

REACTIONS (3)
  - BONE DENSITY DECREASED [None]
  - CEREBRAL HAEMORRHAGE [None]
  - NASOPHARYNGITIS [None]
